FAERS Safety Report 23352684 (Version 1)
Quarter: 2023Q4

REPORT INFORMATION
  Report Type: Spontaneous
  Country: AU (occurrence: AU)
  Receive Date: 20231230
  Receipt Date: 20231230
  Transmission Date: 20240110
  Serious: Yes (Hospitalization, Other)
  Sender: FDA-Public Use
  Company Number: None

PATIENT

DRUGS (6)
  1. LENALIDOMIDE [Suspect]
     Active Substance: LENALIDOMIDE
     Indication: Follicular lymphoma
     Dosage: 20 MILLIGRAM PER DAY (ON DAYS 1 TO 21)
     Route: 048
     Dates: start: 20221214, end: 20221228
  2. LENALIDOMIDE [Suspect]
     Active Substance: LENALIDOMIDE
     Dosage: 20 MILLIGRAM
     Route: 048
     Dates: start: 20230111, end: 20230120
  3. TAFASITAMAB [Suspect]
     Active Substance: TAFASITAMAB
     Indication: Follicular lymphoma
     Dosage: 1530 MILLIGRAM WEEKLY (WEEKLY THE FIRST 3 CYCLES AND Q2W)
     Route: 042
     Dates: start: 20221214, end: 20221221
  4. TAFASITAMAB [Suspect]
     Active Substance: TAFASITAMAB
     Dosage: 1536 MILLIGRAM
     Route: 065
     Dates: start: 20230104, end: 20230125
  5. RITUXIMAB [Suspect]
     Active Substance: RITUXIMAB
     Indication: Follicular lymphoma
     Dosage: 905 MILLIGRAM (FOR 5 CYCLES)
     Route: 042
     Dates: start: 20221215, end: 20221221
  6. RITUXIMAB [Suspect]
     Active Substance: RITUXIMAB
     Dosage: 905 MILLIGRAM
     Route: 042
     Dates: start: 20230105, end: 20230111

REACTIONS (2)
  - Asthma [Unknown]
  - Pneumonia adenoviral [Unknown]

NARRATIVE: CASE EVENT DATE: 20221228
